FAERS Safety Report 14141401 (Version 6)
Quarter: 2019Q3

REPORT INFORMATION
  Report Type: Spontaneous
  Country: JP (occurrence: JP)
  Receive Date: 20171030
  Receipt Date: 20190729
  Transmission Date: 20191004
  Serious: Yes (Other)
  Sender: FDA-Public Use
  Company Number: JP-ACTELION-A-CH2017-161390

PATIENT
  Age: 67 Year
  Sex: Female
  Weight: 44 kg

DRUGS (23)
  1. UPTRAVI [Suspect]
     Active Substance: SELEXIPAG
     Indication: PULMONARY ARTERIAL HYPERTENSION
     Dosage: 0.2 MG, BID
     Route: 048
     Dates: start: 20170224, end: 20170302
  2. UPTRAVI [Suspect]
     Active Substance: SELEXIPAG
     Dosage: 0.8  MG, BID
     Route: 048
     Dates: start: 20170317, end: 20170406
  3. UPTRAVI [Suspect]
     Active Substance: SELEXIPAG
     Dosage: 0.8  MG, BID
     Route: 048
     Dates: start: 20170714, end: 20170727
  4. DIART [Concomitant]
     Active Substance: AZOSEMIDE
     Indication: CARDIAC FAILURE
     Dosage: 30 MG, QD
     Dates: start: 20170407
  5. OXYGEN. [Concomitant]
     Active Substance: OXYGEN
  6. UPTRAVI [Suspect]
     Active Substance: SELEXIPAG
     Dosage: 0.4  MG, BID
     Route: 048
     Dates: start: 20170407, end: 20170511
  7. UPTRAVI [Suspect]
     Active Substance: SELEXIPAG
     Dosage: 0.6  MG, BID
     Route: 048
     Dates: start: 20170512, end: 20170622
  8. UPTRAVI [Suspect]
     Active Substance: SELEXIPAG
     Dosage: 1.2 MG, BID
     Route: 048
     Dates: start: 20170809, end: 20170824
  9. UPTRAVI [Suspect]
     Active Substance: SELEXIPAG
     Dosage: 1.4  MG, BID
     Route: 048
     Dates: start: 20170825, end: 20170906
  10. MAINTATE [Concomitant]
     Active Substance: BISOPROLOL FUMARATE
     Indication: ARRHYTHMIA
     Dosage: 2.5 MG, QD
  11. DIGOSIN [Concomitant]
     Active Substance: DIGOXIN
     Indication: ARRHYTHMIA
     Dosage: 0.125 MG, QD
  12. WARFARIN [Concomitant]
     Active Substance: WARFARIN
     Indication: ARRHYTHMIA
     Dosage: 2.5 MG, QD
  13. ADCIRCA [Concomitant]
     Active Substance: TADALAFIL
  14. OPSUMIT [Suspect]
     Active Substance: MACITENTAN
     Dosage: 10 MG, QD
     Route: 048
     Dates: start: 20160810
  15. UPTRAVI [Suspect]
     Active Substance: SELEXIPAG
     Dosage: 0.4  MG, BID
     Route: 048
     Dates: start: 20170303, end: 20170309
  16. UPTRAVI [Suspect]
     Active Substance: SELEXIPAG
     Dosage: 0.6  MG, BID
     Route: 048
     Dates: start: 20170310, end: 20170316
  17. UPTRAVI [Suspect]
     Active Substance: SELEXIPAG
     Dosage: 1.6 MG, BID
     Route: 048
     Dates: start: 20170907
  18. REVATIO [Suspect]
     Active Substance: SILDENAFIL CITRATE
     Indication: PULMONARY ARTERIAL HYPERTENSION
     Dosage: 20 MG, TID
     Route: 048
     Dates: start: 20170124, end: 20171019
  19. TAKECAB [Concomitant]
     Active Substance: VONOPRAZAN FUMURATE
     Dosage: 10 MG, QD
     Dates: start: 20170305
  20. UPTRAVI [Suspect]
     Active Substance: SELEXIPAG
     Dosage: 0.7  MG, BID
     Route: 048
     Dates: start: 20170623, end: 20170713
  21. UPTRAVI [Suspect]
     Active Substance: SELEXIPAG
     Dosage: 1.0  MG, BID
     Route: 048
     Dates: start: 20170728, end: 20170808
  22. OPSUMIT [Suspect]
     Active Substance: MACITENTAN
     Indication: PULMONARY ARTERIAL HYPERTENSION
     Dosage: 10 MG, QD
     Route: 048
     Dates: start: 20170111
  23. SAMSCA [Concomitant]
     Active Substance: TOLVAPTAN
     Indication: CARDIAC FAILURE
     Dosage: UNK
     Dates: start: 20170607

REACTIONS (3)
  - Cardiac failure [Recovered/Resolved]
  - Platelet count decreased [Not Recovered/Not Resolved]
  - White blood cell count decreased [Not Recovered/Not Resolved]

NARRATIVE: CASE EVENT DATE: 20160916
